FAERS Safety Report 10444001 (Version 1)
Quarter: 2014Q3

REPORT INFORMATION
  Report Type: Spontaneous
  Country: US (occurrence: US)
  Receive Date: 20140910
  Receipt Date: 20140910
  Transmission Date: 20150326
  Serious: No
  Sender: FDA-Public Use
  Company Number: US-TARO-2014TAR00133

PATIENT
  Age: 94 Year
  Sex: Female

DRUGS (2)
  1. WARFARIN SODIUM TABLETS USP 3MG [Suspect]
     Active Substance: WARFARIN SODIUM
     Dosage: 3 MG, 5X/WEEK
     Dates: start: 201201
  2. WARFARIN SODIUM TABLETS USP 3MG [Suspect]
     Active Substance: WARFARIN SODIUM
     Dosage: 6 MG, 2X/WEEK
     Dates: start: 201201

REACTIONS (4)
  - Asthenia [Unknown]
  - Feeling abnormal [Unknown]
  - International normalised ratio decreased [Recovering/Resolving]
  - International normalised ratio fluctuation [Not Recovered/Not Resolved]

NARRATIVE: CASE EVENT DATE: 201406
